FAERS Safety Report 25180578 (Version 1)
Quarter: 2025Q2

REPORT INFORMATION
  Report Type: Spontaneous
  Country: US (occurrence: US)
  Receive Date: 20250409
  Receipt Date: 20250409
  Transmission Date: 20250716
  Serious: Yes (Other)
  Sender: MYLAN
  Company Number: US-MYLANLABS-2025M1029630

PATIENT
  Age: 76 Year
  Sex: Female

DRUGS (8)
  1. DILTIAZEM [Suspect]
     Active Substance: DILTIAZEM
     Indication: Acquired left ventricle outflow tract obstruction
  2. DILTIAZEM [Suspect]
     Active Substance: DILTIAZEM
     Route: 065
  3. DILTIAZEM [Suspect]
     Active Substance: DILTIAZEM
     Route: 065
  4. DILTIAZEM [Suspect]
     Active Substance: DILTIAZEM
  5. METOPROLOL [Concomitant]
     Active Substance: METOPROLOL
     Indication: Acquired left ventricle outflow tract obstruction
  6. METOPROLOL [Concomitant]
     Active Substance: METOPROLOL
     Route: 065
  7. METOPROLOL [Concomitant]
     Active Substance: METOPROLOL
     Route: 065
  8. METOPROLOL [Concomitant]
     Active Substance: METOPROLOL

REACTIONS (1)
  - Drug ineffective [Unknown]
